FAERS Safety Report 6891908-6 (Version None)
Quarter: 2010Q3

REPORT INFORMATION
  Report Type: 
  Country: None (occurrence: None)
  Receive Date: 20100731
  Receipt Date: 20071114
  Transmission Date: 20110219
  Serious: Yes (Death, Other)
  Sender: FDA-Public Use
  Company Number: US-PFIZER INC-2007087999

PATIENT
  Age: 36 Year
  Sex: Female

DRUGS (2)
  1. CAMPTOSAR [Suspect]
  2. CETUXIMAB [Concomitant]

REACTIONS (2)
  - DISEASE PROGRESSION [None]
  - NEOPLASM MALIGNANT [None]
